FAERS Safety Report 9080041 (Version 1)
Quarter: 2013Q1

REPORT INFORMATION
  Report Type: Report from Study
  Country: US (occurrence: US)
  Receive Date: 20130130
  Receipt Date: 20130130
  Transmission Date: 20140127
  Serious: Yes (Other)
  Sender: FDA-Public Use
  Company Number: US-ABBOTT-13P-163-1040049-00

PATIENT
  Age: 52 None
  Sex: Female
  Weight: 108.96 kg

DRUGS (3)
  1. HUMIRA [Suspect]
     Indication: UVEITIS
     Dates: start: 201212
  2. ARAVA [Concomitant]
     Indication: PRODUCT USED FOR UNKNOWN INDICATION
  3. CALCIUM [Concomitant]
     Indication: PRODUCT USED FOR UNKNOWN INDICATION

REACTIONS (5)
  - Visual impairment [Not Recovered/Not Resolved]
  - Off label use [Unknown]
  - Drug dose omission [Unknown]
  - Device malfunction [Unknown]
  - Uveitis [Unknown]
